FAERS Safety Report 8382700-4 (Version None)
Quarter: 2012Q2

REPORT INFORMATION
  Report Type: 
  Country: None (occurrence: None)
  Receive Date: 20120524
  Receipt Date: 20120515
  Transmission Date: 20120825
  Serious: Yes (Hospitalization)
  Sender: FDA-Public Use
  Company Number: US-VERTEX PHARMACEUTICALS INC.-AE-2012-007278

PATIENT
  Sex: Female

DRUGS (3)
  1. RIBAVIRIN [Concomitant]
     Indication: HEPATITIS C
     Dates: start: 20111216, end: 20120422
  2. PEGASYS [Concomitant]
     Indication: HEPATITIS C
     Dates: start: 20111216, end: 20120422
  3. INCIVEK [Suspect]
     Indication: HEPATITIS C
     Dates: start: 20111216, end: 20120312

REACTIONS (3)
  - INFLUENZA LIKE ILLNESS [None]
  - DEPRESSION [None]
  - WEIGHT DECREASED [None]
